FAERS Safety Report 6310257-8 (Version None)
Quarter: 2009Q3

REPORT INFORMATION
  Report Type: 
  Country: None (occurrence: None)
  Receive Date: 20090814
  Receipt Date: 20090807
  Transmission Date: 20100115
  Serious: Yes (Other)
  Sender: FDA-Public Use
  Company Number: FR-ABBOTT-09P-056-0569970-00

PATIENT
  Sex: Male
  Weight: 76 kg

DRUGS (3)
  1. DEPAKOTE [Suspect]
     Indication: BIPOLAR DISORDER
     Dosage: 1 G DAILY
     Route: 048
     Dates: start: 20050101, end: 20090401
  2. LEVOTHYROX [Concomitant]
     Indication: HYPOTHYROIDISM
     Route: 048
  3. LIPANTHYL [Concomitant]
     Indication: HYPERCHOLESTEROLAEMIA
     Route: 048

REACTIONS (3)
  - BULIMIA NERVOSA [None]
  - OEDEMA PERIPHERAL [None]
  - WEIGHT INCREASED [None]
